FAERS Safety Report 5754056-4 (Version None)
Quarter: 2008Q2

REPORT INFORMATION
  Report Type: 
  Country: None (occurrence: None)
  Receive Date: 20080530
  Receipt Date: 20080522
  Transmission Date: 20081010
  Serious: Yes (Other)
  Sender: FDA-Public Use
  Company Number: PHHY2008CA08566

PATIENT

DRUGS (1)
  1. CO-DIOVAN T32564+ [Suspect]
     Indication: HYPERTENSION

REACTIONS (1)
  - URINE ALBUMIN/CREATININE RATIO INCREASED [None]
